FAERS Safety Report 6287213-1 (Version None)
Quarter: 2009Q3

REPORT INFORMATION
  Report Type: 
  Country: None (occurrence: None)
  Receive Date: 20090728
  Receipt Date: 20090727
  Transmission Date: 20100115
  Serious: Yes (Death, Other)
  Sender: FDA-Public Use
  Company Number: US-PFIZER INC-2009239368

PATIENT
  Age: 19 Year
  Sex: Female

DRUGS (5)
  1. SILDENAFIL CITRATE [Suspect]
     Indication: PULMONARY HYPERTENSION
  2. FLOLAN [Suspect]
  3. NEORAL [Concomitant]
  4. CELLCEPT [Concomitant]
  5. PREDNISONE [Concomitant]

REACTIONS (1)
  - HYPOTENSION [None]
